FAERS Safety Report 6501700-X (Version None)
Quarter: 2009Q4

REPORT INFORMATION
  Report Type: 
  Country: None (occurrence: None)
  Receive Date: 20091216
  Receipt Date: 20090922
  Transmission Date: 20100525
  Serious: No
  Sender: FDA-Public Use
  Company Number: US-AMGEN-KDL360440

PATIENT
  Sex: Male

DRUGS (2)
  1. ARANESP [Suspect]
     Indication: ANAEMIA
     Dates: start: 20080601
  2. UNSPECIFIED MEDICATION [Concomitant]

REACTIONS (4)
  - BACK PAIN [None]
  - FATIGUE [None]
  - PROSTATIC SPECIFIC ANTIGEN INCREASED [None]
  - SCIATICA [None]
